FAERS Safety Report 4562302-8 (Version None)
Quarter: 2005Q1

REPORT INFORMATION
  Report Type: 
  Country: None (occurrence: None)
  Receive Date: 20050127
  Receipt Date: 20041018
  Transmission Date: 20050727
  Serious: Yes (Hospitalization)
  Sender: FDA-Public Use
  Company Number: FR-NOVOPROD-239908

PATIENT
  Age: 60 Year
  Sex: Male
  Weight: 73 kg

DRUGS (5)
  1. NORDITROPIN [Suspect]
     Indication: GROWTH HORMONE DEFICIENCY
     Dosage: .1 MG, QD
  2. MINIRIN ^AVENTIS PHARMA^ [Concomitant]
     Indication: ILL-DEFINED DISORDER
     Dosage: .7 MG, QD
     Route: 048
     Dates: start: 19910718
  3. HYDROCORTISONE [Concomitant]
     Indication: ILL-DEFINED DISORDER
     Dosage: 30 MG, QD
     Route: 048
     Dates: start: 19910718
  4. LEVOTHYROXINE SODIUM [Concomitant]
     Indication: ILL-DEFINED DISORDER
     Dosage: 125 UG, QD
     Route: 048
     Dates: start: 19910718
  5. PANTESTON [Concomitant]
     Indication: ILL-DEFINED DISORDER
     Dosage: 80 MG, QD
     Route: 048
     Dates: start: 19910718

REACTIONS (1)
  - GASTROENTERITIS [None]
